FAERS Safety Report 15710222 (Version 2)
Quarter: 2019Q1

REPORT INFORMATION
  Report Type: Report from Study
  Country: IT (occurrence: IT)
  Receive Date: 20181211
  Receipt Date: 20190103
  Transmission Date: 20190417
  Serious: Yes (Other)
  Sender: FDA-Public Use
  Company Number: IT-SHIRE-IT201843807

PATIENT

DRUGS (2)
  1. NATPARA (PARATHYROID HORMONE) [Suspect]
     Active Substance: PARATHYROID HORMONE
     Dosage: 50 ?G, 1X/DAY:QD
     Route: 065
     Dates: start: 20181116
  2. NATPARA (PARATHYROID HORMONE) [Suspect]
     Active Substance: PARATHYROID HORMONE
     Indication: HYPOPARATHYROIDISM
     Dosage: 25 ?G, 1X/DAY:QD
     Route: 058
     Dates: start: 20180912

REACTIONS (18)
  - Vision blurred [Recovered/Resolved]
  - Condition aggravated [Unknown]
  - Injection site haemorrhage [Recovering/Resolving]
  - Dizziness [Recovered/Resolved]
  - Chest discomfort [Recovering/Resolving]
  - Discomfort [Not Recovered/Not Resolved]
  - Somnolence [Recovered/Resolved]
  - Product dose omission [Recovered/Resolved]
  - Abdominal pain [Not Recovered/Not Resolved]
  - Syncope [Recovered/Resolved]
  - Syncope [Recovered/Resolved]
  - Tachycardia [Recovering/Resolving]
  - Headache [Recovering/Resolving]
  - Irritability [Recovered/Resolved]
  - Muscle spasms [Recovering/Resolving]
  - Fatigue [Recovering/Resolving]
  - Pruritus [Recovering/Resolving]
  - Paraesthesia [Recovering/Resolving]

NARRATIVE: CASE EVENT DATE: 20181107
